FAERS Safety Report 23023900 (Version 2)
Quarter: 2023Q4

REPORT INFORMATION
  Report Type: Report from Study
  Country: VN (occurrence: VN)
  Receive Date: 20231003
  Receipt Date: 20231016
  Transmission Date: 20240109
  Serious: Yes (Hospitalization, Other)
  Sender: FDA-Public Use
  Company Number: VN-INCYTE CORPORATION-2022IN012261

PATIENT

DRUGS (13)
  1. RETIFANLIMAB [Suspect]
     Active Substance: RETIFANLIMAB
     Indication: Non-small cell lung cancer
     Dosage: 375 MILLIGRAM Q3W
     Route: 042
     Dates: start: 20221123
  2. RETIFANLIMAB [Suspect]
     Active Substance: RETIFANLIMAB
     Dosage: 375 MILLIGRAM Q3W
     Route: 042
     Dates: start: 20230103
  3. PEMETREXED [Suspect]
     Active Substance: PEMETREXED
     Indication: Non-small cell lung cancer
     Dosage: 500 MILLIGRAM/SQ. METER Q3W
     Route: 042
     Dates: start: 20221123
  4. CARBOPLATIN [Suspect]
     Active Substance: CARBOPLATIN
     Indication: Non-small cell lung cancer
     Dosage: AUC5, Q3W
     Route: 042
     Dates: start: 20221123
  5. DEXAMETHASONE [Concomitant]
     Active Substance: DEXAMETHASONE
     Indication: Prophylactic chemotherapy
     Dosage: 4 MILLIGRAM, BID
     Route: 048
     Dates: start: 20221214, end: 20221214
  6. DEXAMETHASONE [Concomitant]
     Active Substance: DEXAMETHASONE
     Dosage: 8 MILLIGRAM, QD
     Route: 042
     Dates: start: 20221121, end: 20221123
  7. DEXAMETHASONE [Concomitant]
     Active Substance: DEXAMETHASONE
     Dosage: 4 MILLIGRAM, BID
     Route: 048
     Dates: start: 20221124, end: 20221124
  8. VITAMIN B12 [Concomitant]
     Active Substance: CYANOCOBALAMIN
     Indication: Prophylactic chemotherapy
     Dosage: 1000 INTERNATIONAL UNIT, ONCE
     Route: 030
     Dates: start: 20221121, end: 20221121
  9. GLUTATHIONE [Concomitant]
     Active Substance: GLUTATHIONE
     Indication: Prophylaxis
     Dosage: 600 MILLIGRAM, QD
     Route: 042
     Dates: start: 20221121, end: 20221122
  10. DIPHENHYDRAMINE [Concomitant]
     Active Substance: DIPHENHYDRAMINE
     Indication: Prophylactic chemotherapy
     Dosage: 20 MILLIGRAM, ONCE
     Route: 042
     Dates: start: 20221122, end: 20221123
  11. PANTOPRAZOLE [Concomitant]
     Active Substance: PANTOPRAZOLE
     Indication: Prophylaxis
     Dosage: 40 MILLIGRAM, QD
     Route: 048
     Dates: start: 20221121, end: 20221123
  12. NATRI CLORID [Concomitant]
     Indication: Prophylaxis
     Dosage: 500 MILLILITER, QD
     Route: 042
     Dates: start: 20221123, end: 20221123
  13. FERROUS SULFATE [Concomitant]
     Active Substance: FERROUS SULFATE
     Indication: Prophylactic chemotherapy
     Dosage: 2.TABLET QD
     Route: 048
     Dates: start: 20221117

REACTIONS (3)
  - Hypertension [Recovered/Resolved]
  - Infusion related reaction [Recovered/Resolved]
  - Hypersensitivity pneumonitis [Recovered/Resolved]

NARRATIVE: CASE EVENT DATE: 20221215
